FAERS Safety Report 11130788 (Version 1)
Quarter: 2015Q2

REPORT INFORMATION
  Report Type: Spontaneous
  Country: US (occurrence: None)
  Receive Date: 20150520
  Receipt Date: 20150520
  Transmission Date: 20150821
  Serious: Yes (Hospitalization)
  Sender: FDA-Public Use
  Company Number: COR_00290_2015

PATIENT
  Age: 56 Year
  Sex: Male

DRUGS (3)
  1. ETOPOSIDE. [Suspect]
     Active Substance: ETOPOSIDE
     Indication: GERM CELL CANCER
     Dosage: DF
  2. CISPLATIN. [Suspect]
     Active Substance: CISPLATIN
     Indication: GERM CELL CANCER
     Dosage: DF
  3. BLEOMYCIN [Suspect]
     Active Substance: BLEOMYCIN SULFATE
     Indication: GERM CELL CANCER
     Dosage: DF

REACTIONS (11)
  - Fatigue [None]
  - Nausea [None]
  - Apnoea [None]
  - Meningitis cryptococcal [None]
  - Diarrhoea [None]
  - Vomiting [None]
  - Immune reconstitution inflammatory syndrome [None]
  - Cerebral infarction [None]
  - Cellulitis [None]
  - Febrile neutropenia [None]
  - Pericarditis [None]
